FAERS Safety Report 6107274-X (Version None)
Quarter: 2009Q1

REPORT INFORMATION
  Report Type: 
  Country: None (occurrence: None)
  Receive Date: 20090309
  Receipt Date: 20090304
  Transmission Date: 20090719
  Serious: Yes (Hospitalization, Other)
  Sender: FDA-Public Use
  Company Number: FR-BRISTOL-MYERS SQUIBB COMPANY-14506596

PATIENT
  Age: 43 Year
  Sex: Male

DRUGS (2)
  1. LYSODREN [Suspect]
     Indication: ADRENOCORTICAL CARCINOMA
     Dosage: 1 DOSAGE FORM= 6-9 TABS
     Route: 048
     Dates: start: 20050101
  2. HYDROCORTISONE [Concomitant]
     Dosage: 1 DOSAGE FORM= 5-6 UNITS NOT SPECIFIED.

REACTIONS (5)
  - ABASIA [None]
  - ADRENAL INSUFFICIENCY [None]
  - FATIGUE [None]
  - LOSS OF CONSCIOUSNESS [None]
  - MALAISE [None]
